FAERS Safety Report 10523766 (Version 1)
Quarter: 2014Q4

REPORT INFORMATION
  Report Type: Spontaneous
  Country: US (occurrence: None)
  Receive Date: 20141015
  Receipt Date: 20141015
  Transmission Date: 20150528
  Serious: Yes (Death)
  Sender: FDA-Public Use
  Company Number: None

PATIENT
  Sex: Male

DRUGS (1)
  1. AZATHIOPRINE. [Suspect]
     Active Substance: AZATHIOPRINE
     Indication: CROHN^S DISEASE
     Dosage: ONE AND ONE HALF ONCE DAILY TAKEN BY MOUTH
     Route: 048
     Dates: start: 20040228, end: 20131231

REACTIONS (1)
  - Myelodysplastic syndrome [None]
